FAERS Safety Report 9179201 (Version 1)
Quarter: 2013Q1

REPORT INFORMATION
  Report Type: Report from Study
  Country: JP (occurrence: JP)
  Receive Date: 20130321
  Receipt Date: 20130321
  Transmission Date: 20140127
  Serious: Yes (Hospitalization)
  Sender: FDA-Public Use
  Company Number: JP-VIIV HEALTHCARE LIMITED-B0826703A

PATIENT
  Age: 48 Year
  Sex: Male
  Weight: 50 kg

DRUGS (21)
  1. LEXIVA [Suspect]
     Indication: HIV INFECTION
     Dosage: 700MG TWICE PER DAY
     Route: 048
     Dates: start: 20050728, end: 20121114
  2. EPIVIR [Suspect]
     Indication: HIV INFECTION
     Dosage: 150MG TWICE PER DAY
     Route: 048
     Dates: start: 19970405, end: 19991031
  3. EPIVIR [Suspect]
     Indication: HIV INFECTION
     Route: 048
     Dates: start: 19991101, end: 20030331
  4. EPIVIR [Suspect]
     Indication: HIV INFECTION
     Dosage: 150MG TWICE PER DAY
     Route: 048
     Dates: start: 20030401, end: 20050123
  5. EPIVIR [Suspect]
     Indication: HIV INFECTION
     Dosage: 150MG TWICE PER DAY
     Route: 048
     Dates: start: 20050728
  6. KALETRA [Suspect]
     Indication: HIV INFECTION
     Route: 048
     Dates: start: 20050728, end: 20061226
  7. KALETRA [Suspect]
     Indication: HIV INFECTION
     Dosage: 2IUAX TWICE PER DAY
     Route: 048
     Dates: start: 20061227, end: 20121114
  8. TRUVADA [Suspect]
     Indication: HIV INFECTION
     Route: 048
     Dates: start: 20110401, end: 20121114
  9. RETROVIR [Concomitant]
     Indication: HIV INFECTION
     Dosage: 100MG THREE TIMES PER DAY
     Route: 048
     Dates: start: 19970405, end: 19991031
  10. RETROVIR [Concomitant]
     Indication: HIV INFECTION
     Route: 048
     Dates: start: 19991101, end: 20050123
  11. ZIAGEN [Concomitant]
     Indication: HIV INFECTION
     Dosage: 300MG TWICE PER DAY
     Route: 048
     Dates: start: 20050124, end: 20050716
  12. VIDEX EC [Concomitant]
     Indication: HIV INFECTION
     Route: 048
     Dates: start: 20050124, end: 20050716
  13. STOCRIN [Concomitant]
     Indication: HIV INFECTION
     Route: 048
     Dates: start: 20050124, end: 20050716
  14. VIREAD [Concomitant]
     Indication: HIV INFECTION
     Route: 048
     Dates: start: 20050728
  15. RECOMBINATE [Concomitant]
     Indication: FACTOR VIII DEFICIENCY
     Dates: start: 20050401
  16. AMARYL [Concomitant]
     Indication: DIABETES MELLITUS
     Dosage: 2IUAX PER DAY
     Route: 048
     Dates: start: 20050401, end: 20110509
  17. ADVATE [Concomitant]
     Indication: FACTOR VIII DEFICIENCY
     Route: 042
     Dates: start: 20110401
  18. NORVIR [Concomitant]
     Indication: HIV INFECTION
     Route: 048
     Dates: start: 20121115
  19. PREZISTA [Concomitant]
     Indication: HIV INFECTION
     Route: 048
     Dates: start: 20121115
  20. ISENTRESS [Concomitant]
     Indication: HIV INFECTION
     Route: 048
     Dates: start: 20121115
  21. INTELENCE [Concomitant]
     Indication: HIV INFECTION
     Route: 048
     Dates: start: 20121115

REACTIONS (5)
  - Biliary colic [Recovered/Resolved]
  - Pyrexia [Recovering/Resolving]
  - Nausea [Recovering/Resolving]
  - Beta 2 microglobulin urine increased [Not Recovered/Not Resolved]
  - Beta-N-acetyl-D-glucosaminidase increased [Not Recovered/Not Resolved]
